FAERS Safety Report 9696093 (Version 1)
Quarter: 2013Q4

REPORT INFORMATION
  Report Type: Spontaneous
  Country: JP (occurrence: JP)
  Receive Date: 20131119
  Receipt Date: 20131119
  Transmission Date: 20140711
  Serious: Yes (Other)
  Sender: FDA-Public Use
  Company Number: JP-VIIV HEALTHCARE LIMITED-B0944051A

PATIENT
  Age: 2 Year
  Sex: Female

DRUGS (9)
  1. RETROVIR [Suspect]
     Indication: HIV INFECTION
     Route: 064
  2. EPIVIR [Suspect]
     Indication: HIV INFECTION
     Route: 064
  3. ISENTRESS [Suspect]
     Indication: HIV INFECTION
     Route: 064
  4. ZIDOVUDINE [Concomitant]
     Route: 042
  5. KALETRA [Concomitant]
     Dosage: 15MGK TWICE PER DAY
     Route: 048
  6. SODIUM BICARBONATE [Concomitant]
  7. UNKNOWN DRUG [Concomitant]
     Route: 048
  8. ZIAGEN [Concomitant]
     Dosage: 8MGK TWICE PER DAY
     Route: 048
  9. VIRACEPT [Concomitant]
     Dosage: 200MGM2 TWICE PER DAY
     Route: 048

REACTIONS (5)
  - Anaemia [Recovered/Resolved]
  - Bone marrow failure [Recovered/Resolved]
  - Acidosis [Unknown]
  - Hyperlactacidaemia [Recovered/Resolved]
  - Blood lactic acid increased [Recovered/Resolved]
